FAERS Safety Report 21307813 (Version 1)
Quarter: 2022Q3

REPORT INFORMATION
  Report Type: Spontaneous
  Country: CA (occurrence: CA)
  Receive Date: 20220908
  Receipt Date: 20220908
  Transmission Date: 20221026
  Serious: Yes (Hospitalization, Other)
  Sender: FDA-Public Use
  Company Number: CA-CATALYST PHARMACEUTICALS, INC-2022CAT00224

PATIENT
  Sex: Female

DRUGS (2)
  1. FIRDAPSE [Suspect]
     Active Substance: AMIFAMPRIDINE PHOSPHATE
     Indication: Myasthenic syndrome
     Dosage: 10 MG, 6X/DAY
     Route: 048
     Dates: start: 20220326
  2. MESTINON [Concomitant]
     Active Substance: PYRIDOSTIGMINE BROMIDE

REACTIONS (16)
  - Hospitalisation [Recovered/Resolved]
  - Migraine [Unknown]
  - Pain of skin [Unknown]
  - Headache [Unknown]
  - Therapeutic product effect delayed [Unknown]
  - Fatigue [Unknown]
  - Lethargy [Unknown]
  - Memory impairment [Unknown]
  - Chest discomfort [Unknown]
  - Dyspepsia [Unknown]
  - Abdominal discomfort [Unknown]
  - Eye disorder [Unknown]
  - Confusional state [Unknown]
  - Malaise [Unknown]
  - Nausea [Unknown]
  - Hypertension [Unknown]

NARRATIVE: CASE EVENT DATE: 20220101
